FAERS Safety Report 12364483 (Version 7)
Quarter: 2017Q2

REPORT INFORMATION
  Report Type: Spontaneous
  Country: US (occurrence: US)
  Receive Date: 20160512
  Receipt Date: 20170509
  Transmission Date: 20170830
  Serious: Yes (Hospitalization)
  Sender: FDA-Public Use
  Company Number: US-ACTELION-A-US2016-135801

PATIENT
  Age: 67 Year
  Sex: Male
  Weight: 63.6 kg

DRUGS (16)
  1. FOLIC ACID. [Concomitant]
     Active Substance: FOLIC ACID
     Dosage: UNK, QD
     Route: 048
  2. VALCHLOR [Suspect]
     Active Substance: MECHLORETHAMINE
     Dosage: UNK, QOD
     Route: 061
     Dates: start: 20160414
  3. SARNA [Concomitant]
     Dosage: UNK
  4. KETOCONAZOLE. [Concomitant]
     Active Substance: KETOCONAZOLE
     Dosage: 1 APPLICATION 2% CREAM TO BOTTOM OF FEET, QD
     Route: 061
  5. BEXAROTENE. [Concomitant]
     Active Substance: BEXAROTENE
     Dosage: 450 MG, QD
     Route: 065
     Dates: start: 2016
  6. VALCHLOR [Suspect]
     Active Substance: MECHLORETHAMINE
     Indication: MYCOSIS FUNGOIDES
     Dosage: UNK
     Route: 061
  7. MOTRIN [Concomitant]
     Active Substance: IBUPROFEN
     Indication: MUSCLE SPASMS
     Dosage: 200 MG, Q4HRS, PRN
     Route: 048
  8. LEVOTHYROXINE. [Concomitant]
     Active Substance: LEVOTHYROXINE
     Dosage: 150 MCG, QD
  9. ACYCLOVIR. [Concomitant]
     Active Substance: ACYCLOVIR
     Dosage: 400 MG, BID
     Route: 048
  10. LEUCOVORIN. [Concomitant]
     Active Substance: LEUCOVORIN
     Dosage: 25 MG, Q6HRS (BEGIN 24H AFTER PRALATREXATE X 4 DOSES)
     Route: 048
  11. MULTIVITAMIN [Concomitant]
     Active Substance: VITAMINS
     Dosage: 1 TAB, QOD
     Route: 048
  12. VALCHLOR [Suspect]
     Active Substance: MECHLORETHAMINE
     Dosage: 1 APPLICATION 0.016% GEL, QD
     Route: 061
  13. ACYCLOVIR. [Concomitant]
     Active Substance: ACYCLOVIR
     Indication: CONJUNCTIVITIS VIRAL
     Dosage: 400 MG, QD
     Route: 048
     Dates: start: 20170314
  14. VITAMIN C [Concomitant]
     Active Substance: ASCORBIC ACID
     Dosage: 1000 MG, QD
     Route: 048
  15. CLOBETASOL [Concomitant]
     Active Substance: CLOBETASOL
     Dosage: 1 APPLICATION 0.05% OINTMENT, QOD
     Route: 061
  16. BEXAROTENE. [Concomitant]
     Active Substance: BEXAROTENE
     Dosage: 300-450MG QD
     Dates: start: 20150707

REACTIONS (19)
  - Medical device site erythema [Recovered/Resolved]
  - Pruritus [Unknown]
  - Device related sepsis [Not Recovered/Not Resolved]
  - Pyrexia [Recovered/Resolved]
  - Brachiocephalic vein thrombosis [Unknown]
  - Muscle spasms [Unknown]
  - Chills [Recovered/Resolved]
  - Jugular vein thrombosis [Unknown]
  - Conjunctivitis viral [Unknown]
  - Myalgia [Recovered/Resolved]
  - Application site discharge [Unknown]
  - Device related infection [Recovered/Resolved]
  - Medical device site pain [Recovered/Resolved]
  - Application site pruritus [Unknown]
  - Pain [Recovered/Resolved]
  - Ophthalmic herpes simplex [Recovered/Resolved]
  - Application site erythema [Unknown]
  - Fatigue [Recovered/Resolved]
  - Application site irritation [Unknown]

NARRATIVE: CASE EVENT DATE: 20170314
